FAERS Safety Report 5336895-7 (Version None)
Quarter: 2007Q2

REPORT INFORMATION
  Report Type: 
  Country: None (occurrence: None)
  Receive Date: 20070524
  Receipt Date: 20070524
  Transmission Date: 20071010
  Serious: Yes (Life-Threatening)
  Sender: FDA-Public Use
  Company Number: None

PATIENT
  Sex: Female
  Weight: 53 kg

DRUGS (3)
  1. FLUDARABINE PHOSPHATE [Suspect]
     Indication: ACUTE MYELOID LEUKAEMIA
     Dosage: 51 DAILY X 5 IV
     Route: 042
     Dates: start: 20061222, end: 20061226
  2. MELPAHLAN [Suspect]
     Dosage: 238 TIMES ONE IV
     Route: 042
     Dates: start: 20061227, end: 20061227
  3. CAMPATH [Concomitant]

REACTIONS (7)
  - BACTERIAL INFECTION [None]
  - BILE DUCT OBSTRUCTION [None]
  - BILIARY DILATATION [None]
  - CHOLELITHIASIS [None]
  - HEART RATE INCREASED [None]
  - OXYGEN SATURATION DECREASED [None]
  - TACHYPNOEA [None]
